FAERS Safety Report 6809402-7 (Version None)
Quarter: 2010Q2

REPORT INFORMATION
  Report Type: 
  Country: None (occurrence: None)
  Receive Date: 20100625
  Receipt Date: 20100526
  Transmission Date: 20101027
  Serious: Yes (Death, Hospitalization)
  Sender: FDA-Public Use
  Company Number: A-CH2010-36847

PATIENT
  Age: 16 Year
  Sex: Female
  Weight: 47 kg

DRUGS (5)
  1. TRACLEER [Suspect]
     Indication: PULMONARY ARTERIAL HYPERTENSION
     Dosage: 125 MG, BID, ORAL; 62.5 MG, BID, ORAL
     Route: 048
     Dates: start: 20081024, end: 20081122
  2. TRACLEER [Suspect]
     Indication: PULMONARY ARTERIAL HYPERTENSION
     Dosage: 125 MG, BID, ORAL; 62.5 MG, BID, ORAL
     Route: 048
     Dates: start: 20081123, end: 20081224
  3. SILDENAFIL CITRATE [Concomitant]
  4. ACENOCOUMAROL (ACENOCOUMAROL) [Concomitant]
  5. SPIRONOLACTONE [Concomitant]

REACTIONS (2)
  - CHEST PAIN [None]
  - SUDDEN DEATH [None]
